FAERS Safety Report 17765360 (Version 3)
Quarter: 2020Q4

REPORT INFORMATION
  Report Type: Spontaneous
  Country: US (occurrence: US)
  Receive Date: 20200511
  Receipt Date: 20201210
  Transmission Date: 20210113
  Serious: No
  Sender: FDA-Public Use
  Company Number: US-PFIZER INC-2020187333

PATIENT
  Age: 80 Year
  Sex: Female

DRUGS (1)
  1. LYRICA [Suspect]
     Active Substance: PREGABALIN
     Indication: FIBROMYALGIA
     Dosage: 75 MG, 2X/DAY (ONE CAPSULE BY MOUTH TWICE A DAY, DO NOT DRIVE, DRINK ALCOHOL OR OPERATE MACHINERY)
     Route: 048

REACTIONS (2)
  - Arthritis [Unknown]
  - Hypoacusis [Unknown]
